FAERS Safety Report 23605920 (Version 2)
Quarter: 2024Q1

REPORT INFORMATION
  Report Type: Spontaneous
  Country: US (occurrence: US)
  Receive Date: 20240307
  Receipt Date: 20240311
  Transmission Date: 20240409
  Serious: No
  Sender: FDA-Public Use
  Company Number: US-ABBVIE-5665033

PATIENT
  Sex: Female

DRUGS (1)
  1. SKYRIZI [Suspect]
     Active Substance: RISANKIZUMAB-RZAA
     Indication: Guttate psoriasis
     Dosage: FORM STRENGTH: 150 MILLIGRAM
     Route: 058

REACTIONS (3)
  - Off label use [Unknown]
  - Product quality issue [Not Recovered/Not Resolved]
  - Injury associated with device [Unknown]
